FAERS Safety Report 25100217 (Version 1)
Quarter: 2025Q1

REPORT INFORMATION
  Report Type: Spontaneous
  Country: SE (occurrence: SE)
  Receive Date: 20250320
  Receipt Date: 20250320
  Transmission Date: 20250408
  Serious: Yes (Hospitalization)
  Sender: ACCORD
  Company Number: None

PATIENT
  Age: 19 Year
  Sex: Female

DRUGS (8)
  1. QUETIAPINE [Suspect]
     Active Substance: QUETIAPINE
     Dates: start: 20240825, end: 20240825
  2. SERTRALINE [Suspect]
     Active Substance: SERTRALINE HYDROCHLORIDE
     Dates: start: 20240825, end: 20240825
  3. LISDEXAMFETAMINE DIMESYLATE [Suspect]
     Active Substance: LISDEXAMFETAMINE DIMESYLATE
     Dates: start: 20240825, end: 20240825
  4. BUSPIRONE [Suspect]
     Active Substance: BUSPIRONE HYDROCHLORIDE
     Dates: start: 20240825, end: 20240825
  5. PROMETHAZINE HYDROCHLORIDE\THIOUREA [Suspect]
     Active Substance: PROMETHAZINE HYDROCHLORIDE\THIOUREA
     Dates: start: 20240825, end: 20240825
  6. MIRTAZAPINE [Suspect]
     Active Substance: MIRTAZAPINE
     Dates: start: 20240825, end: 20240825
  7. IMOVANE [Suspect]
     Active Substance: ZOPICLONE
     Dates: start: 20240825, end: 20240825
  8. MELATONIN [Suspect]
     Active Substance: MELATONIN
     Dates: start: 20240825, end: 20240825

REACTIONS (2)
  - Intentional self-injury [Unknown]
  - Intentional overdose [Unknown]

NARRATIVE: CASE EVENT DATE: 20240825
